FAERS Safety Report 20409723 (Version 1)
Quarter: 2022Q1

REPORT INFORMATION
  Report Type: Spontaneous
  Country: FR (occurrence: FR)
  Receive Date: 20220201
  Receipt Date: 20220201
  Transmission Date: 20220423
  Serious: Yes (Hospitalization, Other)
  Sender: FDA-Public Use
  Company Number: None

PATIENT
  Age: 14 Year
  Sex: Female

DRUGS (4)
  1. SERTRALINE HYDROCHLORIDE [Suspect]
     Active Substance: SERTRALINE HYDROCHLORIDE
     Indication: Product used for unknown indication
     Dosage: 4 TABLETS OF 50MG IN 1 INTAKE
     Route: 048
     Dates: start: 20211115, end: 20211115
  2. METHYLPHENIDATE HYDROCHLORIDE [Suspect]
     Active Substance: METHYLPHENIDATE HYDROCHLORIDE
     Indication: Product used for unknown indication
     Dosage: 8 TABLETS OF 20 MG IN A SINGLE DOSE
     Route: 048
     Dates: start: 20211115, end: 20211115
  3. MELATONIN [Suspect]
     Active Substance: MELATONIN
     Indication: Product used for unknown indication
     Dosage: 4 TABLETS OF 50 G IN A SINGLE DOSE, 5 MG
     Route: 048
     Dates: start: 20211115, end: 20211115
  4. ATARAX [Suspect]
     Active Substance: HYDROXYZINE HYDROCHLORIDE
     Indication: Product used for unknown indication
     Dosage: 8 TABLETS IN 1 INTAKE
     Route: 048
     Dates: start: 20211115, end: 20211115

REACTIONS (4)
  - Asthenia [Recovering/Resolving]
  - Substance abuse [Unknown]
  - Headache [Recovering/Resolving]
  - Intentional product misuse [Unknown]

NARRATIVE: CASE EVENT DATE: 20211115
